FAERS Safety Report 19614040 (Version 1)
Quarter: 2021Q3

REPORT INFORMATION
  Report Type: Spontaneous
  Country: GB (occurrence: GB)
  Receive Date: 20210727
  Receipt Date: 20210727
  Transmission Date: 20211014
  Serious: Yes (Other)
  Sender: FDA-Public Use
  Company Number: GB-MYLANLABS-2021M1045260

PATIENT
  Age: 76 Year
  Sex: Female
  Weight: 72 kg

DRUGS (7)
  1. ADIPINE                            /00340701/ [Concomitant]
     Dosage: 1 DOSAGE FORM, QD
     Dates: start: 20210318
  2. NAPROXEN. [Concomitant]
     Active Substance: NAPROXEN
     Dosage: 1 DOSAGE FORM, BID
     Dates: start: 20210625
  3. EZETIMIBE. [Suspect]
     Active Substance: EZETIMIBE
     Indication: PRODUCT USED FOR UNKNOWN INDICATION
     Dosage: 10 MILLIGRAM, QD
     Dates: start: 20200908, end: 20210426
  4. OMEPRAZOLE. [Concomitant]
     Active Substance: OMEPRAZOLE
     Dosage: 1 DOSAGE FORM, BID
     Dates: start: 20210625
  5. BENDROFLUMETHIAZIDE [Concomitant]
     Active Substance: BENDROFLUMETHIAZIDE
     Dosage: 1 DOSAGE FORM, QD, IN THE MORNING
     Dates: start: 20200908
  6. IRBESARTAN. [Concomitant]
     Active Substance: IRBESARTAN
     Dosage: 1 DOSAGE FORM, QD
     Dates: start: 20200908
  7. AMOXICILLIN. [Concomitant]
     Active Substance: AMOXICILLIN
     Dosage: 1 DOSAGE FORM, TID
     Dates: start: 20210603, end: 20210610

REACTIONS (1)
  - Contusion [Unknown]

NARRATIVE: CASE EVENT DATE: 20210713
